FAERS Safety Report 5276053-8 (Version None)
Quarter: 2007Q1

REPORT INFORMATION
  Report Type: 
  Country: None (occurrence: None)
  Receive Date: 20070321
  Receipt Date: 20061221
  Transmission Date: 20070707
  Serious: Yes (Hospitalization, Other)
  Sender: FDA-Public Use
  Company Number: 234417K06USA

PATIENT
  Age: 57 Year
  Sex: Male
  Weight: 65.7716 kg

DRUGS (8)
  1. REBIF [Suspect]
     Indication: MULTIPLE SCLEROSIS
     Dosage: 44 MCG, 3 IN 1 WEEKS, SUBCUTANEOUS
     Route: 058
     Dates: start: 20060320
  2. SOLU-MEDROL [Suspect]
     Dates: start: 20060601, end: 20060601
  3. LISINOPRIL (LISINOPRIL /00894001/) [Concomitant]
  4. TOPROL-XL [Concomitant]
  5. ZOCOR (ZOCOR CARDIO ASS) [Concomitant]
  6. ASPIRIN [Concomitant]
  7. ZETIA [Concomitant]
  8. UROXATRAL [Concomitant]

REACTIONS (4)
  - CONDITION AGGRAVATED [None]
  - DIABETES MELLITUS [None]
  - HEMIPLEGIA [None]
  - MULTIPLE SCLEROSIS [None]
